FAERS Safety Report 9467112 (Version 1)
Quarter: 2013Q3

REPORT INFORMATION
  Report Type: Spontaneous
  Country: US (occurrence: US)
  Receive Date: 20130820
  Receipt Date: 20130820
  Transmission Date: 20140515
  Serious: Yes (Death)
  Sender: FDA-Public Use
  Company Number: US-CUBIST PHARMACEUTICAL, INC.-2012US000014

PATIENT
  Sex: Male
  Weight: 79.5 kg

DRUGS (6)
  1. ENTEREG [Suspect]
     Indication: PRODUCT USED FOR UNKNOWN INDICATION
     Dosage: 12 MG, BID
     Route: 048
     Dates: start: 20120716, end: 20120718
  2. ESOMEPRAZOLE [Concomitant]
     Indication: DYSPEPSIA
     Dosage: 40 MG, QD
     Route: 048
  3. SERTRALINE [Concomitant]
     Indication: DEPRESSION
     Dosage: 50 MG, QD
     Route: 048
  4. HEPARIN [Concomitant]
     Indication: THROMBOSIS PROPHYLAXIS
     Dosage: 5000 UNITS, TID
     Route: 042
  5. MORPHINE PCA [Concomitant]
     Dosage: UNK UNK, PRN
     Route: 042
  6. ACETAMINOPHEN [Concomitant]
     Indication: PAIN
     Dosage: 325 MG, PRN
     Route: 048

REACTIONS (1)
  - Postoperative ileus [Not Recovered/Not Resolved]
